FAERS Safety Report 9113744 (Version 1)
Quarter: 2013Q1

REPORT INFORMATION
  Report Type: Spontaneous
  Country: US (occurrence: US)
  Receive Date: 20130129
  Receipt Date: 20130129
  Transmission Date: 20140127
  Serious: No
  Sender: FDA-Public Use
  Company Number: US-VERTEX PHARMACEUTICALS INC.-2013-001245

PATIENT
  Age: 54 Year
  Sex: Male
  Weight: 77 kg

DRUGS (5)
  1. INCIVEK [Suspect]
     Indication: HEPATITIS C
     Dosage: 750 MG, TID
     Route: 048
     Dates: start: 20130124
  2. RIBAVIRIN [Suspect]
     Indication: HEPATITIS C
     Dosage: 3 DF, BID
     Route: 048
     Dates: start: 20130124
  3. PEGASYS [Suspect]
     Indication: HEPATITIS C
     Dosage: 135 ?G, WEEKLY
     Route: 058
     Dates: start: 20130124
  4. OXYCODONE [Concomitant]
     Indication: BACK PAIN
  5. CANNABIS SATIVA SUBSP. INDICA TOP [Concomitant]
     Indication: BACK PAIN

REACTIONS (2)
  - Dry mouth [Not Recovered/Not Resolved]
  - Feeling hot [Not Recovered/Not Resolved]
